FAERS Safety Report 9056583 (Version 2)
Quarter: 2013Q1

REPORT INFORMATION
  Report Type: Spontaneous
  Country: NO (occurrence: NO)
  Receive Date: 20130204
  Receipt Date: 20130226
  Transmission Date: 20140127
  Serious: Yes (Congenital Anomaly)
  Sender: FDA-Public Use
  Company Number: NO-ABBOTT-13P-122-1044866-00

PATIENT
  Sex: 0

DRUGS (3)
  1. VALPROIC ACID [Suspect]
     Indication: MATERNAL EXPOSURE TIMING UNSPECIFIED
     Route: 064
  2. LEVETIRACETAM [Interacting]
     Indication: MATERNAL EXPOSURE TIMING UNSPECIFIED
     Route: 064
  3. OXCARBAZEPINE [Interacting]
     Indication: MATERNAL EXPOSURE TIMING UNSPECIFIED
     Route: 064

REACTIONS (3)
  - Drug interaction [Unknown]
  - Polydactyly [Unknown]
  - Foetal exposure during pregnancy [Unknown]
